FAERS Safety Report 21287390 (Version 3)
Quarter: 2022Q4

REPORT INFORMATION
  Report Type: Report from Study
  Country: ES (occurrence: ES)
  Receive Date: 20220902
  Receipt Date: 20221213
  Transmission Date: 20230113
  Serious: Yes (Life-Threatening, Hospitalization)
  Sender: FDA-Public Use
  Company Number: ES-JNJFOC-20220856380

PATIENT
  Age: 64 Year
  Sex: Female
  Weight: 59.7 kg

DRUGS (7)
  1. AMIVANTAMAB [Suspect]
     Active Substance: AMIVANTAMAB
     Indication: Non-small cell lung cancer
     Dosage: LAST DOSE PRIOR TO THE EVENT WAS ON 11-AUG-2022
     Route: 042
     Dates: start: 20220721
  2. CARBOPLATIN [Suspect]
     Active Substance: CARBOPLATIN
     Indication: Non-small cell lung cancer
     Dosage: LAST DOSE PRIOR TO THE EVENT WAS ON 11-AUG-2022
     Route: 042
     Dates: start: 20220721
  3. PEMETREXED [Suspect]
     Active Substance: PEMETREXED
     Indication: Non-small cell lung cancer
     Dosage: LAST DOSE PRIOR TO THE EVENT WAS ON 11-AUG-2022
     Route: 042
     Dates: start: 20220721
  4. FOLIC ACID [Concomitant]
     Active Substance: FOLIC ACID
     Indication: Prophylaxis
     Route: 048
     Dates: start: 20220701
  5. CYANOCOBALAMIN [Concomitant]
     Active Substance: CYANOCOBALAMIN
     Indication: Prophylaxis
     Route: 030
     Dates: start: 20220701
  6. ACYCLOVIR [Concomitant]
     Active Substance: ACYCLOVIR
     Indication: Stomatitis
     Dosage: DOSE 1 (UNITS NOT SPECIFIED)
     Route: 061
     Dates: start: 20220804
  7. PREDNICARBATE [Concomitant]
     Active Substance: PREDNICARBATE
     Indication: Rash
     Dosage: DOSE 1 (UNITS NOT SPECIFIED)
     Route: 061
     Dates: start: 20220804

REACTIONS (1)
  - Stomatitis [Recovered/Resolved]

NARRATIVE: CASE EVENT DATE: 20220812
